FAERS Safety Report 12561179 (Version 1)
Quarter: 2016Q3

REPORT INFORMATION
  Report Type: Spontaneous
  Country: US (occurrence: US)
  Receive Date: 20160715
  Receipt Date: 20160715
  Transmission Date: 20161109
  Serious: No
  Sender: FDA-Public Use
  Company Number: US-BEH-2016070782

PATIENT
  Sex: Female
  Weight: 73.92 kg

DRUGS (31)
  1. ACARBOSE. [Concomitant]
     Active Substance: ACARBOSE
  2. SPIRIVA [Concomitant]
     Active Substance: TIOTROPIUM BROMIDE MONOHYDRATE
  3. VENTOLIN HFA [Concomitant]
     Active Substance: ALBUTEROL SULFATE
  4. VITAMIN C [Concomitant]
     Active Substance: ASCORBIC ACID
  5. QVAR [Concomitant]
     Active Substance: BECLOMETHASONE DIPROPIONATE
  6. MIRENA [Concomitant]
     Active Substance: LEVONORGESTREL
  7. CLOBETASOL PROPIONATE. [Concomitant]
     Active Substance: CLOBETASOL PROPIONATE
  8. ZYRTEC [Concomitant]
     Active Substance: CETIRIZINE HYDROCHLORIDE
  9. IPRATROPIUM/ALBUTEROL [Concomitant]
     Active Substance: ALBUTEROL\IPRATROPIUM
  10. RIZATRIPTAN. [Concomitant]
     Active Substance: RIZATRIPTAN
  11. DIAZEPAM. [Concomitant]
     Active Substance: DIAZEPAM
  12. ADVAIR UNSPEC [Concomitant]
  13. VITAMIN D                          /00107901/ [Concomitant]
     Active Substance: ERGOCALCIFEROL
  14. BENZONATATE. [Concomitant]
     Active Substance: BENZONATATE
  15. ACETAMINOPHEN. [Concomitant]
     Active Substance: ACETAMINOPHEN
  16. LIDOCAINE. [Concomitant]
     Active Substance: LIDOCAINE
  17. ACETAMINOPHEN. [Concomitant]
     Active Substance: ACETAMINOPHEN
  18. RABEPRAZOLE SODIUM. [Concomitant]
     Active Substance: RABEPRAZOLE SODIUM
  19. VALTREX [Concomitant]
     Active Substance: VALACYCLOVIR HYDROCHLORIDE
  20. KETOCONAZOLE. [Concomitant]
     Active Substance: KETOCONAZOLE
  21. ACIPHEX [Concomitant]
     Active Substance: RABEPRAZOLE SODIUM
  22. ONDANSETRON ODT [Concomitant]
     Active Substance: ONDANSETRON
  23. EPIPEN [Concomitant]
     Active Substance: EPINEPHRINE
  24. HIZENTRA [Suspect]
     Active Substance: HUMAN IMMUNOGLOBULIN G
     Indication: HYPOGAMMAGLOBULINAEMIA
     Dosage: 12 G, QW
     Route: 058
  25. FUROSEMIDE. [Concomitant]
     Active Substance: FUROSEMIDE
  26. ALBUTEROL SULFATE. [Concomitant]
     Active Substance: ALBUTEROL SULFATE
  27. DESONIDE. [Concomitant]
     Active Substance: DESONIDE
  28. DIPHENHYDRAMINE. [Concomitant]
     Active Substance: DIPHENHYDRAMINE
  29. CALCIUM [Concomitant]
     Active Substance: CALCIUM
  30. NORCO [Concomitant]
     Active Substance: ACETAMINOPHEN\HYDROCODONE BITARTRATE
  31. VALACYCLOVIR [Concomitant]
     Active Substance: VALACYCLOVIR HYDROCHLORIDE

REACTIONS (1)
  - Sinusitis [Unknown]
